FAERS Safety Report 7937864-0 (Version None)
Quarter: 2011Q4

REPORT INFORMATION
  Report Type: 
  Country: None (occurrence: None)
  Receive Date: 20111123
  Receipt Date: 20111117
  Transmission Date: 20120403
  Serious: Yes (Other)
  Sender: FDA-Public Use
  Company Number: US-JNJFOC-20111109831

PATIENT
  Age: 90 Year
  Sex: Female

DRUGS (1)
  1. NUCYNTA [Suspect]
     Indication: PAIN
     Dosage: EVERY 4-6 HOURS
     Route: 065

REACTIONS (2)
  - PSYCHOTIC BEHAVIOUR [None]
  - DIZZINESS [None]
